FAERS Safety Report 11363863 (Version 1)
Quarter: 2015Q3

REPORT INFORMATION
  Report Type: Spontaneous
  Country: CA (occurrence: CA)
  Receive Date: 20150811
  Receipt Date: 20150811
  Transmission Date: 20151125
  Serious: Yes (Death, Other)
  Sender: FDA-Public Use
  Company Number: CA-NOVOPROD-458785

PATIENT
  Age: 32 Year
  Sex: Female

DRUGS (2)
  1. LANTUS [Suspect]
     Active Substance: INSULIN GLARGINE
     Indication: INSULIN-REQUIRING TYPE 2 DIABETES MELLITUS
     Dosage: UNK
     Route: 065
  2. NOVORAPID [Suspect]
     Active Substance: INSULIN ASPART
     Indication: INSULIN-REQUIRING TYPE 2 DIABETES MELLITUS
     Dosage: UNK
     Route: 065

REACTIONS (8)
  - Accidental death [Fatal]
  - Pulmonary embolism [Unknown]
  - Thrombophlebitis [Unknown]
  - Acute coronary syndrome [Unknown]
  - Sepsis [Unknown]
  - Hypoglycaemia [Unknown]
  - Poisoning [Unknown]
  - Somnolence [Unknown]
